FAERS Safety Report 21013948 (Version 10)
Quarter: 2022Q4

REPORT INFORMATION
  Report Type: Spontaneous
  Country: US (occurrence: US)
  Receive Date: 20220627
  Receipt Date: 20221010
  Transmission Date: 20230113
  Serious: Yes (Hospitalization)
  Sender: FDA-Public Use
  Company Number: US-SANOFI-01153967

PATIENT
  Age: 59 Year
  Sex: Female

DRUGS (4)
  1. TOUJEO [Suspect]
     Active Substance: INSULIN GLARGINE
     Indication: Type 2 diabetes mellitus
     Dosage: 20 IU, QD
  2. TOUJEO [Suspect]
     Active Substance: INSULIN GLARGINE
     Dosage: 25 IU, QD
     Route: 058
     Dates: start: 20220701, end: 20220715
  3. TOUJEO [Suspect]
     Active Substance: INSULIN GLARGINE
     Dosage: 24 UNK
  4. GLIPIZIDE [Concomitant]
     Active Substance: GLIPIZIDE

REACTIONS (13)
  - Illness [Unknown]
  - Eye disorder [Unknown]
  - Dyspnoea [Unknown]
  - Hyperphagia [Unknown]
  - Malaise [Unknown]
  - Cardiac disorder [Unknown]
  - Myocardial necrosis marker [Unknown]
  - Immune system disorder [Unknown]
  - Uterine leiomyoma [Unknown]
  - Pruritus [Unknown]
  - Drug hypersensitivity [Unknown]
  - Glycosylated haemoglobin increased [Unknown]
  - Incorrect dose administered [Unknown]

NARRATIVE: CASE EVENT DATE: 20220701
